FAERS Safety Report 24750421 (Version 2)
Quarter: 2024Q4

REPORT INFORMATION
  Report Type: Spontaneous
  Country: US (occurrence: US)
  Receive Date: 20241218
  Receipt Date: 20241227
  Transmission Date: 20250114
  Serious: Yes (Other)
  Sender: PFIZER
  Company Number: US-PFIZER INC-202400327169

PATIENT
  Age: 67 Year
  Sex: Female

DRUGS (1)
  1. XELJANZ XR [Suspect]
     Active Substance: TOFACITINIB CITRATE
     Dosage: 11 MG

REACTIONS (6)
  - Rotator cuff repair [Unknown]
  - Femur fracture [Unknown]
  - Pain [Unknown]
  - Hand deformity [Unknown]
  - Limb deformity [Unknown]
  - Finger deformity [Unknown]

NARRATIVE: CASE EVENT DATE: 20241101
